FAERS Safety Report 16475386 (Version 1)
Quarter: 2019Q2

REPORT INFORMATION
  Report Type: Spontaneous
  Country: GB (occurrence: GB)
  Receive Date: 20190625
  Receipt Date: 20190625
  Transmission Date: 20190711
  Serious: Yes (Hospitalization)
  Sender: FDA-Public Use
  Company Number: GB-DEXPHARM-20190434

PATIENT
  Age: 91 Year
  Sex: Female
  Weight: 60.8 kg

DRUGS (9)
  1. CO-AMILOFRUSE [Suspect]
     Active Substance: AMILORIDE\FUROSEMIDE
     Dosage: MORNING
     Route: 048
  2. LEVOTHYROXINE. [Concomitant]
     Active Substance: LEVOTHYROXINE
  3. METFORMIN [Concomitant]
     Active Substance: METFORMIN HYDROCHLORIDE
  4. AMLODIPINE [Concomitant]
     Active Substance: AMLODIPINE BESYLATE
  5. APIXABAN [Concomitant]
     Active Substance: APIXABAN
  6. OMEPRAZOLE. [Suspect]
     Active Substance: OMEPRAZOLE
     Dosage: MORNING
     Route: 048
  7. VALSARTAN. [Concomitant]
     Active Substance: VALSARTAN
  8. ATORVASTATIN [Concomitant]
     Active Substance: ATORVASTATIN
  9. QUININE [Concomitant]
     Active Substance: QUININE

REACTIONS (2)
  - Hyponatraemia [Recovering/Resolving]
  - Prescription drug used without a prescription [Unknown]
